FAERS Safety Report 7119117-6 (Version None)
Quarter: 2010Q4

REPORT INFORMATION
  Report Type: 
  Country: None (occurrence: None)
  Receive Date: 20101123
  Receipt Date: 20101118
  Transmission Date: 20110411
  Serious: Yes (Hospitalization)
  Sender: FDA-Public Use
  Company Number: DE-ELI_LILLY_AND_COMPANY-DE201011002516

PATIENT
  Sex: Female
  Weight: 64 kg

DRUGS (17)
  1. NECITUMUMAB (11F8) (LY3012211) [Suspect]
     Indication: NON-SMALL CELL LUNG CANCER
     Dosage: 800 MG, OTHER
     Route: 042
     Dates: start: 20100715
  2. PEMETREXED [Suspect]
     Indication: NON-SMALL CELL LUNG CANCER
     Dosage: 860 MG, OTHER
     Route: 042
     Dates: start: 20100715
  3. CISPLATIN [Suspect]
     Indication: NON-SMALL CELL LUNG CANCER
     Dosage: 130 MG, OTHER
     Route: 042
     Dates: start: 20100715
  4. PANTOPRAZOLE SODIUM [Concomitant]
     Indication: GASTRITIS
     Dates: start: 20090101
  5. LEVOTHYROXINE SODIUM [Concomitant]
     Indication: HYPOTHYROIDISM
     Dates: start: 20070101
  6. NOVAMINSULFON [Concomitant]
     Indication: CHEST PAIN
     Dates: start: 20100701
  7. PALLADONE [Concomitant]
     Indication: CHEST PAIN
     Dates: start: 20100705
  8. AMITRIPTYLINE HCL [Concomitant]
     Indication: CHEST PAIN
     Dates: start: 20100726
  9. LYRICA [Concomitant]
     Indication: CHEST PAIN
     Dates: start: 20100726
  10. MCP [Concomitant]
     Indication: NAUSEA
     Dates: start: 20101003
  11. ZOFRAN [Concomitant]
     Indication: NAUSEA
     Dates: start: 20101003
  12. SEVREDOL [Concomitant]
     Indication: CHEST PAIN
     Dates: start: 20100809
  13. IBUPROFEN TABLETS [Concomitant]
     Indication: CHEST PAIN
     Dates: start: 20100809
  14. DURAGESIC-100 [Concomitant]
     Indication: CHEST PAIN
     Dates: start: 20100812
  15. CLEXANE [Concomitant]
     Indication: THROMBOPHLEBITIS
     Dates: start: 20100811
  16. MORPHIN HCL [Concomitant]
     Indication: TUMOUR PAIN
     Dates: start: 20100831
  17. FRAXIPARIN [Concomitant]
     Indication: IMMOBILISATION PROLONGED
     Dates: start: 20101109

REACTIONS (2)
  - SKIN INFECTION [None]
  - THROMBOSIS [None]
